FAERS Safety Report 8342965 (Version 4)
Quarter: 2012Q4

REPORT INFORMATION
  Report Type: 
  Country: US (occurrence: US)
  Receive Date: 20111202
  Receipt Date: 20121107
  Transmission Date: 20130627
  Serious: Yes (Hospitalization, Other)
  Sender: FDA-Public Use
  Company Number: US-009507513-2011SP040934

PATIENT

DRUGS (1)
  1. NUVARING [Suspect]
     Indication: CONTRACEPTION
     Dosage: UNK
     Route: 067
     Dates: start: 20071021, end: 20080921

REACTIONS (17)
  - Hypokalaemia [Recovered/Resolved]
  - Pulmonary embolism [Recovered/Resolved]
  - Dyspepsia [Unknown]
  - Eructation [Unknown]
  - Soft tissue mass [Unknown]
  - Increased bronchial secretion [Unknown]
  - Polyp [Unknown]
  - Lung cyst [Unknown]
  - Bronchiectasis [Unknown]
  - Pulmonary pneumatocele [Unknown]
  - Diarrhoea [Recovered/Resolved]
  - Back pain [Unknown]
  - Deep vein thrombosis [Recovered/Resolved]
  - Nausea [Recovered/Resolved]
  - Vomiting [Recovered/Resolved]
  - Road traffic accident [Unknown]
  - Neck pain [Unknown]
